FAERS Safety Report 9385661 (Version 2)
Quarter: 2013Q4

REPORT INFORMATION
  Report Type: Report from Study
  Country: JP (occurrence: JP)
  Receive Date: 20130705
  Receipt Date: 20131209
  Transmission Date: 20140711
  Serious: Yes (Hospitalization)
  Sender: FDA-Public Use
  Company Number: JP-GLAXOSMITHKLINE-B0904673A

PATIENT
  Age: 71 Year
  Sex: Male

DRUGS (8)
  1. VOTRIENT 200MG [Suspect]
     Indication: DEDIFFERENTIATED LIPOSARCOMA
     Dosage: 800MG PER DAY
     Route: 048
     Dates: start: 20130612, end: 20130623
  2. OXYCONTIN [Concomitant]
     Indication: DEDIFFERENTIATED LIPOSARCOMA
     Route: 048
  3. NOVAMINE [Concomitant]
     Indication: PROPHYLAXIS OF NAUSEA AND VOMITING
     Route: 065
  4. DOMPERIDONE [Concomitant]
     Indication: PROPHYLAXIS OF NAUSEA AND VOMITING
     Route: 065
  5. CELECOX [Concomitant]
     Indication: DEDIFFERENTIATED LIPOSARCOMA
     Route: 048
  6. XYZAL [Concomitant]
     Indication: PRURITUS
     Route: 048
  7. URSO [Concomitant]
     Indication: PROPHYLAXIS
     Route: 048
  8. ESOMEPRAZOLE MAGNESIUM [Concomitant]
     Indication: GASTRITIS PROPHYLAXIS
     Route: 048

REACTIONS (2)
  - Dehydration [Recovered/Resolved]
  - Stomatitis [Recovered/Resolved]
